FAERS Safety Report 5256909-2 (Version None)
Quarter: 2007Q1

REPORT INFORMATION
  Report Type: 
  Country: None (occurrence: None)
  Receive Date: 20070307
  Receipt Date: 20070228
  Transmission Date: 20070707
  Serious: Yes (Other)
  Sender: FDA-Public Use
  Company Number: PHBS2006DE15402

PATIENT
  Age: 84 Year
  Sex: Female

DRUGS (1)
  1. ZOMETA [Suspect]
     Indication: PLASMACYTOMA
     Dates: start: 20021101, end: 20040501

REACTIONS (2)
  - MANDIBULECTOMY [None]
  - OSTEONECROSIS [None]
